FAERS Safety Report 4865182-6 (Version None)
Quarter: 2005Q4

REPORT INFORMATION
  Report Type: 
  Country: None (occurrence: None)
  Receive Date: 20051221
  Receipt Date: 20051221
  Transmission Date: 20060501
  Serious: Yes (Hospitalization)
  Sender: FDA-Public Use
  Company Number: None

PATIENT
  Age: 74 Year
  Sex: Female
  Weight: 72.5755 kg

DRUGS (2)
  1. PEMETREXED   500MG/M2 [Suspect]
     Indication: NON-SMALL CELL LUNG CANCER
     Dosage: 1780MG  EVERY 21 DAYS  IV
     Route: 042
  2. CISPLATIN [Suspect]
     Indication: NON-SMALL CELL LUNG CANCER
     Dosage: 134MG   EVERY 21 DAYS  IV
     Route: 042

REACTIONS (4)
  - ABDOMINAL PAIN [None]
  - LARGE INTESTINAL ULCER [None]
  - LARGE INTESTINE PERFORATION [None]
  - PERITONITIS [None]
